FAERS Safety Report 21257579 (Version 1)
Quarter: 2022Q3

REPORT INFORMATION
  Report Type: Spontaneous
  Country: US (occurrence: None)
  Receive Date: 20220826
  Receipt Date: 20220826
  Transmission Date: 20221027
  Serious: No
  Sender: FDA-Public Use
  Company Number: US-Orexo US, Inc.-ORE202112-000053

PATIENT
  Age: 46 Year
  Sex: Male

DRUGS (2)
  1. ZUBSOLV [Suspect]
     Active Substance: BUPRENORPHINE HYDROCHLORIDE\NALOXONE HYDROCHLORIDE
     Indication: Drug dependence
     Dosage: 5.7MG/1.4MG /(2) TABLETS
     Route: 060
     Dates: start: 2020
  2. VALIUM [Concomitant]
     Active Substance: DIAZEPAM

REACTIONS (1)
  - Product dose omission issue [Unknown]

NARRATIVE: CASE EVENT DATE: 20211124
